APPROVED DRUG PRODUCT: KYGEVVI
Active Ingredient: DOXECITINE; DOXRIBTIMINE
Strength: 2GM/PACKET;2GM/PACKET
Dosage Form/Route: FOR SOLUTION;ORAL
Application: N219792 | Product #001
Applicant: UCB INC
Approved: Nov 3, 2025 | RLD: Yes | RS: Yes | Type: RX

PATENTS:
Patent 11649259 | Expires: Aug 19, 2040
Patent 10471087 | Expires: Aug 7, 2036

EXCLUSIVITY:
Code: NCE | Date: Nov 3, 2030